FAERS Safety Report 7880067 (Version 3)
Quarter: 2013Q3

REPORT INFORMATION
  Report Type: Spontaneous
  Country: MA (occurrence: MA)
  Receive Date: 20110331
  Receipt Date: 20130828
  Transmission Date: 20140515
  Serious: Yes (Death, Other)
  Sender: FDA-Public Use
  Company Number: MA-PFIZER INC-2011069482

PATIENT
  Age: 67 Year
  Sex: Male

DRUGS (1)
  1. SUTENT [Suspect]
     Indication: GASTROINTESTINAL STROMAL TUMOUR
     Dosage: 50 MG, 1X/DAY
     Route: 048
     Dates: start: 20090605, end: 20110325

REACTIONS (14)
  - Haemolysis [Fatal]
  - Angiopathy [Fatal]
  - Hypothyroidism [Unknown]
  - Renal impairment [Unknown]
  - Palmar-plantar erythrodysaesthesia syndrome [Unknown]
  - Hypertension [Unknown]
  - Functional gastrointestinal disorder [Unknown]
  - Abdominal pain [Unknown]
  - Skin discolouration [Unknown]
  - Hair colour changes [Unknown]
  - Normochromic normocytic anaemia [Unknown]
  - Hyposideraemia [Unknown]
  - Asthenia [Unknown]
  - Sleep disorder [Unknown]
